FAERS Safety Report 7632306-7 (Version None)
Quarter: 2011Q3

REPORT INFORMATION
  Report Type: 
  Country: None (occurrence: None)
  Receive Date: 20110725
  Receipt Date: 20100721
  Transmission Date: 20111222
  Serious: No
  Sender: FDA-Public Use
  Company Number: US-BRISTOL-MYERS SQUIBB COMPANY-15204662

PATIENT
  Age: 67 Year
  Sex: Female

DRUGS (3)
  1. LOVENOX [Suspect]
     Indication: THROMBOSIS
     Dosage: 80MG 2/D JAN-OCT09 100MG 2/D 14-16MAY10,100MG 2/D 18-21MAY10 LOT21166,EXP28FEB13
     Route: 065
     Dates: start: 20090101, end: 20100521
  2. LOVENOX [Suspect]
     Indication: ANTICOAGULANT THERAPY
     Dosage: 80MG 2/D JAN-OCT09 100MG 2/D 14-16MAY10,100MG 2/D 18-21MAY10 LOT21166,EXP28FEB13
     Route: 065
     Dates: start: 20090101, end: 20100521
  3. COUMADIN [Suspect]
     Dosage: INTERRUPTED ON MAY10 RESTARTED ON 21MAY10

REACTIONS (3)
  - INJECTION SITE MASS [None]
  - CONTUSION [None]
  - INJECTION SITE HAEMATOMA [None]
